FAERS Safety Report 8456314-1 (Version None)
Quarter: 2012Q2

REPORT INFORMATION
  Report Type: 
  Country: None (occurrence: None)
  Receive Date: 20120621
  Receipt Date: 20120614
  Transmission Date: 20120825
  Serious: Yes (Hospitalization)
  Sender: FDA-Public Use
  Company Number: US-GLAXOSMITHKLINE-A0673497A

PATIENT
  Age: 47 Year
  Sex: Male

DRUGS (6)
  1. MICARDIS [Concomitant]
  2. LANTUS [Concomitant]
  3. LIPITOR [Concomitant]
  4. GLUCOPHAGE [Concomitant]
  5. ASPIRIN [Concomitant]
  6. AVANDIA [Suspect]
     Indication: TYPE 2 DIABETES MELLITUS
     Dosage: 8MG PER DAY
     Route: 048
     Dates: start: 20010401, end: 20070701

REACTIONS (3)
  - DIZZINESS [None]
  - INSOMNIA [None]
  - MYOCARDIAL INFARCTION [None]
